FAERS Safety Report 12497083 (Version 2)
Quarter: 2016Q3

REPORT INFORMATION
  Report Type: Report from Study
  Country: DE (occurrence: DE)
  Receive Date: 20160624
  Receipt Date: 20160825
  Transmission Date: 20161109
  Serious: Yes (Hospitalization)
  Sender: FDA-Public Use
  Company Number: PHHY2016DE084871

PATIENT
  Sex: Female
  Weight: 83 kg

DRUGS (21)
  1. COSENTYX [Suspect]
     Active Substance: SECUKINUMAB
     Dosage: 300 MG,PER APPLICATION  QMO
     Route: 065
     Dates: start: 20160111
  2. COSENTYX [Suspect]
     Active Substance: SECUKINUMAB
     Dosage: 300 MG,PER APPLICATION  QMO
     Route: 065
     Dates: start: 20160208
  3. OMEPRAZOLE. [Concomitant]
     Active Substance: OMEPRAZOLE
     Indication: REFLUX GASTRITIS
     Dosage: UNK UNK, QD
     Route: 048
     Dates: start: 201506
  4. COSENTYX [Suspect]
     Active Substance: SECUKINUMAB
     Dosage: 300 MG, PER APPLICATION QW
     Route: 065
     Dates: start: 20151102
  5. L THYROX [Concomitant]
     Indication: THYROID DISORDER
     Dosage: UNK UNK, QD
     Route: 048
     Dates: start: 201506
  6. AMLODIPINE [Concomitant]
     Active Substance: AMLODIPINE BESYLATE
     Indication: SLEEP DISORDER
     Dosage: UNK UNK, QD
     Route: 048
     Dates: start: 201406
  7. ISOKET [Concomitant]
     Active Substance: ISOSORBIDE DINITRATE
     Indication: HYPERTENSION
     Dosage: UNK UNK, TID
     Route: 048
     Dates: start: 200806
  8. COSENTYX [Suspect]
     Active Substance: SECUKINUMAB
     Indication: PSORIASIS
     Dosage: 300 MG, PER APPLICATION QW
     Route: 065
     Dates: start: 20151019
  9. PLAVIX [Concomitant]
     Active Substance: CLOPIDOGREL BISULFATE
     Indication: ANTIPLATELET THERAPY
     Dosage: UNK UNK, QD
     Route: 048
     Dates: start: 201306
  10. BELOC-ZOC MITE [Concomitant]
     Active Substance: METOPROLOL SUCCINATE
     Indication: HYPERTENSION
     Dosage: UNK UNK, BID
     Route: 048
     Dates: start: 200806
  11. COSENTYX [Suspect]
     Active Substance: SECUKINUMAB
     Dosage: 300 MG, PER APPLICATION QW
     Route: 065
     Dates: start: 20151026
  12. COSENTYX [Suspect]
     Active Substance: SECUKINUMAB
     Dosage: 300 MG, PER APPLICATION QW
     Route: 065
     Dates: start: 20151109
  13. COSENTYX [Suspect]
     Active Substance: SECUKINUMAB
     Dosage: 300 MG,PER APPLICATION  QMO
     Route: 065
     Dates: start: 20151116
  14. COSENTYX [Suspect]
     Active Substance: SECUKINUMAB
     Dosage: 300 MG,PER APPLICATION  QMO
     Route: 065
     Dates: start: 20151214
  15. OXAZEPAM. [Concomitant]
     Active Substance: OXAZEPAM
     Indication: SLEEP DISORDER
     Dosage: UNK UNK, QD
     Route: 048
     Dates: start: 201406
  16. HYDROCORTISON ACETATE [Concomitant]
     Indication: RASH
     Dosage: UNK UKN, PRN
     Route: 061
     Dates: start: 20131004
  17. INSULIN [Concomitant]
     Active Substance: INSULIN NOS
     Indication: DIABETES MELLITUS
     Dosage: UNK UKN, UNK
     Route: 058
     Dates: start: 20151005
  18. CORVATON [Concomitant]
     Active Substance: MOLSIDOMINE
     Indication: HYPERTENSION
     Dosage: UNK UNK, QD
     Route: 048
     Dates: start: 200506
  19. COSENTYX [Suspect]
     Active Substance: SECUKINUMAB
     Dosage: 300 MG,PER APPLICATION  QMO
     Route: 065
     Dates: start: 20160307
  20. COSENTYX [Suspect]
     Active Substance: SECUKINUMAB
     Dosage: 300 MG,PER APPLICATION  QMO
     Route: 065
     Dates: start: 20160404
  21. VIGANTOLETTEN [Concomitant]
     Active Substance: CHOLECALCIFEROL
     Indication: VITAMIN D DEFICIENCY
     Dosage: UNK UNK, QD
     Route: 048
     Dates: start: 201306

REACTIONS (1)
  - Hypertension [Recovered/Resolved]

NARRATIVE: CASE EVENT DATE: 201602
